FAERS Safety Report 15845583 (Version 2)
Quarter: 2019Q1

REPORT INFORMATION
  Report Type: Spontaneous
  Country: GR (occurrence: GR)
  Receive Date: 20190119
  Receipt Date: 20190130
  Transmission Date: 20190417
  Serious: Yes (Other)
  Sender: FDA-Public Use
  Company Number: GR-ASTELLAS-2019US002088

PATIENT
  Age: 70 Year
  Sex: Male

DRUGS (5)
  1. GALVUS [Concomitant]
     Active Substance: VILDAGLIPTIN
     Indication: DIABETES MELLITUS
     Dosage: UNK UNK, ONCE DAILY
     Route: 065
  2. ORIZAL [Concomitant]
     Active Substance: AMLODIPINE BESYLATE\OLMESARTAN MEDOXOMIL
     Indication: HYPERTENSION
     Dosage: UNK UNK, TWICE DAILY
     Route: 065
  3. XTANDI [Suspect]
     Active Substance: ENZALUTAMIDE
     Indication: HORMONE-REFRACTORY PROSTATE CANCER
     Route: 048
     Dates: start: 20181202
  4. VESOMNI [Concomitant]
     Active Substance: SOLIFENACIN\TAMSULOSIN
     Indication: HYPERTONIC BLADDER
     Dosage: 1 TAB (6/0.4), ONCE DAILY
     Route: 048
  5. ARVEKAP [Concomitant]
     Active Substance: TRIPTORELIN
     Indication: HORMONE-REFRACTORY PROSTATE CANCER
     Dosage: UNK UNK, EVERY 3 MONTHS
     Route: 065
     Dates: start: 2011

REACTIONS (8)
  - Dry eye [Not Recovered/Not Resolved]
  - Hypertensive crisis [Recovered/Resolved]
  - Headache [Not Recovered/Not Resolved]
  - Fatigue [Not Recovered/Not Resolved]
  - Amnesia [Not Recovered/Not Resolved]
  - Constipation [Not Recovered/Not Resolved]
  - Treatment noncompliance [Unknown]
  - Abdominal pain [Not Recovered/Not Resolved]

NARRATIVE: CASE EVENT DATE: 201812
